FAERS Safety Report 7895525-0 (Version None)
Quarter: 2011Q4

REPORT INFORMATION
  Report Type: 
  Country: None (occurrence: None)
  Receive Date: 20111104
  Receipt Date: 20111104
  Transmission Date: 20120403
  Serious: Yes (Other)
  Sender: FDA-Public Use
  Company Number: None

PATIENT
  Age: 42 Year
  Sex: Female
  Weight: 85.7298 kg

DRUGS (2)
  1. TOPAMAX [Concomitant]
  2. VISINE EYE DROPS [Suspect]
     Indication: DRY EYE
     Dosage: 1 IN 1 TOTAL, OPTHALMIC
     Route: 047
     Dates: start: 20110426, end: 20110426

REACTIONS (4)
  - RASH [None]
  - EYE IRRITATION [None]
  - CHEMICAL BURNS OF EYE [None]
  - CORNEAL DISORDER [None]
